FAERS Safety Report 4780381-X (Version None)
Quarter: 2005Q3

REPORT INFORMATION
  Report Type: 
  Country: None (occurrence: None)
  Receive Date: 20050926
  Receipt Date: 20050916
  Transmission Date: 20060218
  Serious: Yes (Disabling, Other)
  Sender: FDA-Public Use
  Company Number: A103741

PATIENT
  Age: 70 Year
  Sex: Male
  Weight: 78 kg

DRUGS (2)
  1. SILDENAFIL CITRATE [Suspect]
     Indication: ERECTILE DYSFUNCTION
     Dosage: 25 MG (PRN), ORAL
     Route: 048
     Dates: start: 19990101, end: 20010116
  2. ACETYLSALICYLATE CALCIUM (ACETYLSALICYLATE CALCIUM) [Concomitant]

REACTIONS (5)
  - ASTHENIA [None]
  - BLINDNESS UNILATERAL [None]
  - RETINAL ARTERY OCCLUSION [None]
  - RETINAL ARTERY THROMBOSIS [None]
  - RETINAL INFARCTION [None]
